FAERS Safety Report 9353280 (Version 1)
Quarter: 2013Q2

REPORT INFORMATION
  Report Type: Spontaneous
  Country: US (occurrence: None)
  Receive Date: 20130617
  Receipt Date: 20130617
  Transmission Date: 20140414
  Serious: Yes (Hospitalization)
  Sender: FDA-Public Use
  Company Number: None

PATIENT
  Age: 71 Year
  Sex: Male
  Weight: 77.7 kg

DRUGS (1)
  1. AMOXICILLIN [Suspect]
     Indication: DENTAL DISORDER PROPHYLAXIS
     Dosage: 2000 MG ONCE PO
     Route: 048
     Dates: start: 20130425, end: 20130425

REACTIONS (3)
  - Drug eruption [None]
  - Rash pruritic [None]
  - Rash erythematous [None]
